FAERS Safety Report 6821594-2 (Version None)
Quarter: 2010Q3

REPORT INFORMATION
  Report Type: 
  Country: None (occurrence: None)
  Receive Date: 20100707
  Receipt Date: 20090501
  Transmission Date: 20110219
  Serious: No
  Sender: FDA-Public Use
  Company Number: US-PFIZER INC-2009171216

PATIENT
  Age: 21 Year
  Sex: Female
  Weight: 58.967 kg

DRUGS (2)
  1. ZOLOFT [Suspect]
     Indication: SUICIDAL IDEATION
     Dosage: 125 MG, 1X/DAY
  2. ORAL CONTRACEPTIVE NOS [Concomitant]
     Dosage: UNK

REACTIONS (1)
  - DRUG SCREEN POSITIVE [None]
